FAERS Safety Report 24969286 (Version 2)
Quarter: 2025Q1

REPORT INFORMATION
  Report Type: Spontaneous
  Country: JP (occurrence: JP)
  Receive Date: 20250214
  Receipt Date: 20250220
  Transmission Date: 20250408
  Serious: Yes (Death)
  Sender: RIGEL PHARMACEUTICALS
  Company Number: JP-KISSEI-TL20250108_P_1

PATIENT
  Age: 9 Decade
  Sex: Female

DRUGS (1)
  1. TAVALISSE [Suspect]
     Active Substance: FOSTAMATINIB
     Indication: Immune thrombocytopenia
     Route: 048

REACTIONS (1)
  - Septic shock [Fatal]
